FAERS Safety Report 14068775 (Version 4)
Quarter: 2017Q4

REPORT INFORMATION
  Report Type: Spontaneous
  Country: US (occurrence: US)
  Receive Date: 20171010
  Receipt Date: 20171212
  Transmission Date: 20180321
  Serious: No
  Sender: FDA-Public Use
  Company Number: US-PFIZER INC-2017435219

PATIENT
  Age: 92 Year
  Sex: Male

DRUGS (4)
  1. BICARBONATE [Suspect]
     Active Substance: BICARBONATE ION
     Dosage: UNK, X2
  2. ATROPINE SULFATE. [Suspect]
     Active Substance: ATROPINE SULFATE
     Dosage: UNK
  3. EPINEPHRINE. [Suspect]
     Active Substance: EPINEPHRINE
     Dosage: UNK, X4
  4. MAGNESIUM SULFATE. [Suspect]
     Active Substance: MAGNESIUM SULFATE
     Dosage: 2 G, UNK

REACTIONS (1)
  - No adverse event [Unknown]
